FAERS Safety Report 15607516 (Version 2)
Quarter: 2018Q4

REPORT INFORMATION
  Report Type: Report from Study
  Country: None (occurrence: GR)
  Receive Date: 20181112
  Receipt Date: 20181211
  Transmission Date: 20190205
  Serious: Yes (Hospitalization)
  Sender: FDA-Public Use
  Company Number: GR-ABBVIE-18S-066-2547864-00

PATIENT
  Age: 68 Year
  Sex: Male
  Weight: 80 kg

DRUGS (5)
  1. CIPRALEX [Concomitant]
     Active Substance: ESCITALOPRAM OXALATE
     Indication: DEPRESSION
     Route: 048
  2. LEPONEX [Concomitant]
     Active Substance: CLOZAPINE
     Indication: INSOMNIA
     Route: 048
  3. BICALUT [Concomitant]
     Indication: PROSTATIC DISORDER
     Route: 048
  4. DUODOPA [Suspect]
     Active Substance: CARBIDOPA\LEVODOPA
     Indication: PARKINSON^S DISEASE
     Dosage: MORNING DOSE:9.0ML; CONTINUOUS RATE:3.6ML/H; EXTRA DOSE:2.0ML
     Route: 050
     Dates: start: 201111
  5. EXELON [Concomitant]
     Active Substance: RIVASTIGMINE TARTRATE
     Indication: AMNESIA
     Route: 062

REACTIONS (2)
  - Bacteraemia [Unknown]
  - Urinary tract infection [Recovered/Resolved]

NARRATIVE: CASE EVENT DATE: 201810
